FAERS Safety Report 16929877 (Version 2)
Quarter: 2019Q4

REPORT INFORMATION
  Report Type: Spontaneous
  Country: ES (occurrence: ES)
  Receive Date: 20191017
  Receipt Date: 20191104
  Transmission Date: 20200122
  Serious: Yes (Other)
  Sender: FDA-Public Use
  Company Number: ES-JNJFOC-20191007457

PATIENT
  Age: 55 Year
  Sex: Female

DRUGS (1)
  1. REMICADE [Suspect]
     Active Substance: INFLIXIMAB
     Indication: CROHN^S DISEASE
     Dosage: FOR THREE YEARS
     Route: 042
     Dates: start: 2011

REACTIONS (4)
  - Immunosuppression [Unknown]
  - Product use issue [Unknown]
  - Off label use [Unknown]
  - Leishmaniasis [Recovered/Resolved]

NARRATIVE: CASE EVENT DATE: 2011
